FAERS Safety Report 16230428 (Version 8)
Quarter: 2022Q4

REPORT INFORMATION
  Report Type: Spontaneous
  Country: GB (occurrence: GB)
  Receive Date: 20190423
  Receipt Date: 20221202
  Transmission Date: 20230113
  Serious: Yes (Hospitalization, Other)
  Sender: FDA-Public Use
  Company Number: PHHY2019GB088308

PATIENT
  Age: 55 Year
  Sex: Male

DRUGS (10)
  1. METFORMIN [Suspect]
     Active Substance: METFORMIN HYDROCHLORIDE
     Indication: Product used for unknown indication
     Dosage: 3 G, QD, (TOOK 3 DAYS WORTH OF MEDICATION - OVERDOSE)
     Route: 065
     Dates: start: 20190327, end: 20190327
  2. ATORVASTATIN [Suspect]
     Active Substance: ATORVASTATIN
     Indication: Product used for unknown indication
     Dosage: 120 MG, QD  (TOOK 3 DAYS WORTH OF MEDICATION - OVERDOSE)
     Route: 005
     Dates: start: 20190327, end: 20190327
  3. RAMIPRIL [Suspect]
     Active Substance: RAMIPRIL
     Indication: Product used for unknown indication
     Dosage: 7.5 MG, QD (TOOK 3 DAYS WORTH OF MEDICATION - OVERDOSE)
     Route: 065
     Dates: start: 20190327, end: 20190327
  4. CLOZAPINE [Suspect]
     Active Substance: CLOZAPINE
     Indication: Product used for unknown indication
     Dosage: 1 G, QD
     Route: 048
     Dates: start: 20050805, end: 201808
  5. CLOZAPINE [Suspect]
     Active Substance: CLOZAPINE
     Dosage: UNK
     Route: 048
     Dates: start: 20180828, end: 201811
  6. CLOZAPINE [Suspect]
     Active Substance: CLOZAPINE
     Dosage: UNK
     Route: 048
     Dates: start: 20181120, end: 201901
  7. CLOZAPINE [Suspect]
     Active Substance: CLOZAPINE
     Dosage: UNK
     Route: 048
     Dates: start: 20190116, end: 201903
  8. CLOZAPINE [Suspect]
     Active Substance: CLOZAPINE
     Dosage: UNK
     Route: 048
     Dates: start: 2019
  9. CLOZAPINE [Suspect]
     Active Substance: CLOZAPINE
     Dosage: 1 GRAM, UNK (TOOK 3 DAYS WORTH OF MEDICATION - OVERDOSE)
     Route: 048
     Dates: start: 20190317, end: 20190317
  10. CLOZAPINE [Suspect]
     Active Substance: CLOZAPINE
     Dosage: 1 G (TOOK 3 DAYS WORTH OF MEDICATION - OVERDOSE)
     Route: 048
     Dates: start: 20190327, end: 20190327

REACTIONS (14)
  - Pneumonia aspiration [Recovering/Resolving]
  - Metabolic acidosis [Recovered/Resolved]
  - Body temperature decreased [Recovered/Resolved]
  - Tricuspid valve incompetence [Unknown]
  - Hypotension [Recovered/Resolved]
  - Tachycardia [Recovered/Resolved]
  - Overdose [Recovered/Resolved]
  - Blood glucose decreased [Recovered/Resolved]
  - Neutrophil count increased [Unknown]
  - White blood cell count increased [Unknown]
  - Drug abuse [Unknown]
  - Intentional product misuse [Unknown]
  - Medication error [Unknown]
  - Off label use [Unknown]

NARRATIVE: CASE EVENT DATE: 20190301
